FAERS Safety Report 4370889-3 (Version None)
Quarter: 2004Q2

REPORT INFORMATION
  Report Type: 
  Country: None (occurrence: None)
  Receive Date: 20040601
  Receipt Date: 20040517
  Transmission Date: 20050107
  Serious: Yes (Life-Threatening)
  Sender: FDA-Public Use
  Company Number: 430004M04FRA

PATIENT
  Age: 70 Year
  Sex: Female

DRUGS (8)
  1. NOVANTRONE [Suspect]
     Indication: NON-HODGKIN'S LYMPHOMA STAGE II
     Dosage: 10 MG/M2, 1 IN 1 CYCLE, INTRAVENOUS
     Route: 042
     Dates: start: 20001101, end: 20010601
  2. CARMUSTINE [Suspect]
     Dosage: UNKNOWN, INTRAVENOUS
     Route: 042
  3. CYCLOPHOSPHAMIDE [Suspect]
     Dosage: 2 NOT REPORTERED, 1 IN 1 DAYS, PER ORAL
     Route: 048
     Dates: start: 19990501, end: 20000301
  4. CYCLOPHOSPHAMIDE [Suspect]
     Dosage: 2 NOT REPORTERED, 1 IN 1 DAYS, PER ORAL
     Route: 048
     Dates: start: 20001101, end: 20010601
  5. DOXORUBICIN HCL [Suspect]
     Dosage: INTRAVENOUS
     Route: 042
     Dates: start: 19990501, end: 20000301
  6. ETOPOSIDE [Suspect]
     Dosage: INTRAVENOUS
     Route: 042
     Dates: start: 20020101, end: 20020101
  7. FLUDARABINE PHOSPHATE [Suspect]
     Dosage: 20 MG/M2, 5 IN 1 CYCLE, UNKNOWN
     Dates: start: 20001101, end: 20010601
  8. MELPHALAN [Suspect]
     Dosage: INTRAVENOUS
     Route: 042

REACTIONS (4)
  - ACUTE MONOCYTIC LEUKAEMIA [None]
  - MYELODYSPLASTIC SYNDROME [None]
  - NEUROPATHY PERIPHERAL [None]
  - NON-HODGKIN'S LYMPHOMA RECURRENT [None]
